FAERS Safety Report 8137956-X (Version None)
Quarter: 2012Q1

REPORT INFORMATION
  Report Type: 
  Country: None (occurrence: None)
  Receive Date: 20120103
  Receipt Date: 20111013
  Transmission Date: 20120608
  Serious: No
  Sender: FDA-Public Use
  Company Number: AE-2011-001507

PATIENT
  Age: 53 Year
  Sex: Male
  Weight: 115.6672 kg

DRUGS (9)
  1. DEPAKOTE [Concomitant]
  2. REMERON [Concomitant]
  3. RISPERDAL [Concomitant]
  4. INCIVEK [Suspect]
     Dosage: 2250 MG (750 MG, 1 IN 8 HR), ORAL
     Route: 048
     Dates: start: 20110710
  5. PEGASYS [Concomitant]
  6. METOPROLOL TARTRATE [Concomitant]
  7. RIBAVIRIN [Concomitant]
  8. TRAZODONE HCL [Concomitant]
  9. METFORMIN HCL [Concomitant]

REACTIONS (1)
  - DRUG DOSE OMISSION [None]
